FAERS Safety Report 4590156-2 (Version None)
Quarter: 2005Q1

REPORT INFORMATION
  Report Type: 
  Country: None (occurrence: None)
  Receive Date: 20050217
  Receipt Date: 20050207
  Transmission Date: 20050727
  Serious: Yes (Death, Hospitalization)
  Sender: FDA-Public Use
  Company Number: 2005US000186

PATIENT
  Age: 61 Year
  Sex: Male

DRUGS (3)
  1. PROGRAF [Suspect]
     Indication: PROPHYLAXIS AGAINST TRANSPLANT REJECTION
     Dosage: 1.50 MG, BID, ORAL
     Route: 048
  2. MYCOPHENOLATE MOFETIL (MYCOPHENOLATE MOFETIL) [Suspect]
     Indication: PROPHYLAXIS AGAINST TRANSPLANT REJECTION
     Dosage: 1.00 G, BID, ORAL
     Route: 048
  3. PREDNISONE [Suspect]
     Indication: PROPHYLAXIS AGAINST TRANSPLANT REJECTION
     Dosage: 40.00 MG, UID/QD,

REACTIONS (12)
  - BILIARY ANASTOMOSIS COMPLICATION [None]
  - CRYPTOGENIC ORGANIZING PNEUMONIA [None]
  - DISEASE RECURRENCE [None]
  - HEPATIC CIRRHOSIS [None]
  - HEPATITIS C [None]
  - INGUINAL HERNIA, OBSTRUCTIVE [None]
  - LIVER FUNCTION TEST ABNORMAL [None]
  - MENTAL STATUS CHANGES [None]
  - PERITONITIS BACTERIAL [None]
  - PLEURAL EFFUSION [None]
  - SEPTIC ARTHRITIS STAPHYLOCOCCAL [None]
  - UPPER GASTROINTESTINAL HAEMORRHAGE [None]
